FAERS Safety Report 5370525-3 (Version None)
Quarter: 2007Q2

REPORT INFORMATION
  Report Type: 
  Country: None (occurrence: None)
  Receive Date: 20070622
  Receipt Date: 20070606
  Transmission Date: 20071010
  Serious: Yes (Other)
  Sender: FDA-Public Use
  Company Number: 8024566

PATIENT
  Age: 24 Year
  Sex: Female
  Weight: 48 kg

DRUGS (2)
  1. CETIRIZINE HCL [Suspect]
     Indication: CONJUNCTIVITIS
     Dosage: 5 MG 1/D PO
     Route: 048
     Dates: start: 20070407, end: 20070413
  2. VALETTE [Concomitant]

REACTIONS (2)
  - DRUG EFFECT DECREASED [None]
  - WITHDRAWAL BLEED [None]
